FAERS Safety Report 23945615 (Version 1)
Quarter: 2024Q2

REPORT INFORMATION
  Report Type: Spontaneous
  Country: US (occurrence: None)
  Receive Date: 20240605
  Receipt Date: 20240605
  Transmission Date: 20240716
  Serious: No
  Sender: FDA-Public Use
  Company Number: None

PATIENT
  Age: 64 Year
  Sex: Female
  Weight: 89.1 kg

DRUGS (19)
  1. ZOMETA [Suspect]
     Active Substance: ZOLEDRONIC ACID
  2. BISOPROLOL [Concomitant]
  3. ADTHYZA [Concomitant]
  4. LETROZOLE [Concomitant]
     Active Substance: LETROZOLE
  5. MONTELUKAST [Concomitant]
     Active Substance: MONTELUKAST SODIUM
  6. METFORMIN [Concomitant]
  7. MOUNJARO [Concomitant]
     Active Substance: TIRZEPATIDE
  8. LEVALO [Concomitant]
  9. ZETIA [Concomitant]
     Active Substance: EZETIMIBE
  10. VASCEPA [Concomitant]
     Active Substance: ICOSAPENT ETHYL
  11. ZYRTEC [Concomitant]
     Active Substance: CETIRIZINE HYDROCHLORIDE
  12. TYLENOL [Concomitant]
     Active Substance: ACETAMINOPHEN
  13. MULTIVITAMIN WITH B COMPLEX [Concomitant]
  14. MUSHROOMS [Concomitant]
  15. TUMERIC [Concomitant]
  16. NAD+/NIMH [Concomitant]
  17. CALCIUM [Concomitant]
     Active Substance: CALCIUM
  18. CINAMON [Concomitant]
  19. FENUGREEK SEED [Concomitant]
     Active Substance: FENUGREEK SEED

REACTIONS (9)
  - Chills [None]
  - Incontinence [None]
  - Paranasal sinus haemorrhage [None]
  - Pain [None]
  - Fatigue [None]
  - Headache [None]
  - Brain fog [None]
  - Fall [None]
  - Fatigue [None]

NARRATIVE: CASE EVENT DATE: 20240529
